FAERS Safety Report 23189477 (Version 2)
Quarter: 2023Q4

REPORT INFORMATION
  Report Type: Report from Study
  Country: AR (occurrence: AR)
  Receive Date: 20231116
  Receipt Date: 20231122
  Transmission Date: 20240110
  Serious: Yes (Other)
  Sender: FDA-Public Use
  Company Number: AR-CELLTRION INC.-2023AR021944

PATIENT

DRUGS (8)
  1. RITUXIMAB [Suspect]
     Active Substance: RITUXIMAB
     Indication: Burkitt^s lymphoma
     Dosage: 375 MG/M2
  2. RITUXIMAB [Suspect]
     Active Substance: RITUXIMAB
     Indication: Diffuse large B-cell lymphoma
  3. RITUXIMAB [Suspect]
     Active Substance: RITUXIMAB
     Indication: Primary mediastinal large B-cell lymphoma
  4. RITUXIMAB [Suspect]
     Active Substance: RITUXIMAB
     Indication: Mature B-cell type acute leukaemia
  5. METHOTREXATE [Suspect]
     Active Substance: METHOTREXATE
     Indication: Burkitt^s lymphoma
     Dosage: 5 GRAM PER SQUARE METRE
  6. METHOTREXATE [Suspect]
     Active Substance: METHOTREXATE
     Indication: Diffuse large B-cell lymphoma
  7. METHOTREXATE [Suspect]
     Active Substance: METHOTREXATE
     Indication: Primary mediastinal large B-cell lymphoma
  8. METHOTREXATE [Suspect]
     Active Substance: METHOTREXATE
     Indication: Mature B-cell type acute leukaemia

REACTIONS (6)
  - Nephropathy toxic [Unknown]
  - Hepatotoxicity [Unknown]
  - Mucosal inflammation [Unknown]
  - Neurotoxicity [Unknown]
  - Infection [Unknown]
  - Neutropenia [Unknown]
